FAERS Safety Report 10963301 (Version 3)
Quarter: 2015Q3

REPORT INFORMATION
  Report Type: Spontaneous
  Country: US (occurrence: US)
  Receive Date: 20150327
  Receipt Date: 20150715
  Transmission Date: 20151125
  Serious: Yes (Other)
  Sender: FDA-Public Use
  Company Number: US-GILEAD-2015-0143982

PATIENT
  Age: 64 Year
  Sex: Male
  Weight: 64.9 kg

DRUGS (5)
  1. ASCRIPTIN [Concomitant]
     Active Substance: ASPIRIN
  2. METOPROLOL SUCCINATE. [Concomitant]
     Active Substance: METOPROLOL SUCCINATE
  3. POTASSIUM CHLORIDE. [Concomitant]
     Active Substance: POTASSIUM CHLORIDE
  4. HARVONI [Suspect]
     Active Substance: LEDIPASVIR\SOFOSBUVIR
     Indication: HEPATITIS C
     Dosage: UNK
     Route: 065
     Dates: start: 2015
  5. ACETAMINOPHEN. [Concomitant]
     Active Substance: ACETAMINOPHEN

REACTIONS (4)
  - Nausea [Recovering/Resolving]
  - Drug-induced liver injury [Unknown]
  - Transaminases increased [Recovered/Resolved]
  - Fatigue [Recovering/Resolving]
